FAERS Safety Report 8618237-4 (Version None)
Quarter: 2012Q3

REPORT INFORMATION
  Report Type: 
  Country: None (occurrence: None)
  Receive Date: 20120824
  Receipt Date: 20120815
  Transmission Date: 20120928
  Serious: Yes (Hospitalization)
  Sender: FDA-Public Use
  Company Number: US-PAR PHARMACEUTICAL, INC-2012SCPR004330

PATIENT

DRUGS (27)
  1. DILTIAZEM [Concomitant]
     Indication: CHEST PAIN
  2. LOPRESSOR [Concomitant]
     Indication: HYPERTENSION
     Dosage: 50 MG, QD
     Route: 048
     Dates: start: 20050101
  3. PRINIVIL [Concomitant]
     Indication: HYPERTENSION
     Dosage: 20 MG, BID
     Route: 048
     Dates: start: 20120421
  4. LIDOCAINE [Concomitant]
     Indication: SEDATIVE THERAPY
     Dosage: 50 MG, ONCE
     Dates: start: 20120416, end: 20120416
  5. CLARITIN                           /00917501/ [Concomitant]
     Dosage: 10 MG, QD
     Route: 048
  6. SYNTHROID [Concomitant]
     Indication: HYPOTHYROIDISM
     Dosage: 125 MCG, QD
     Route: 048
     Dates: start: 19920101
  7. PLAVIX [Concomitant]
     Indication: CEREBROVASCULAR ACCIDENT PROPHYLAXIS
     Dosage: 75 MG, QD
     Route: 048
     Dates: start: 20100101
  8. CORTICOSTEROIDS [Concomitant]
     Indication: ASTHMA
     Dosage: UNK, BID
     Route: 045
  9. NORVASC [Concomitant]
     Indication: PRODUCT USED FOR UNKNOWN INDICATION
     Dosage: UNK, UNKNOWN
     Route: 065
  10. PRAVASTATIN [Concomitant]
     Indication: HYPERCHOLESTEROLAEMIA
     Dosage: 40 MG, AT BEDTIME
     Route: 048
     Dates: start: 20110101
  11. SINGULAIR [Concomitant]
     Indication: SEASONAL ALLERGY
     Dosage: 10 MG, AT BEDTIME
     Route: 048
     Dates: start: 20000101
  12. PROPOFOL [Concomitant]
     Indication: SEDATIVE THERAPY
     Dosage: 600 MG, SINGLE
     Dates: start: 20120416, end: 20120416
  13. DUONEB [Concomitant]
     Indication: ASTHMA
     Dosage: 90 MCG, PRN
     Route: 055
     Dates: start: 20120421
  14. CELEXA [Concomitant]
     Indication: DEPRESSION
     Dosage: 20 MG, QD
     Route: 048
     Dates: start: 20120421
  15. CPAP MASK [Concomitant]
     Indication: SLEEP APNOEA SYNDROME
     Dosage: UNK, UNKNOWN
     Route: 045
     Dates: start: 19900101
  16. VANCOMYCIN [Concomitant]
     Indication: PRODUCT USED FOR UNKNOWN INDICATION
     Dosage: UNK, UNKNOWN
     Route: 065
  17. CLARITIN                           /00917501/ [Concomitant]
     Indication: HYPERTENSION
     Dosage: 20 MG, QD
     Route: 048
     Dates: start: 20050101
  18. LOPRESSOR [Concomitant]
     Dosage: 50 MG, BID
     Route: 048
  19. LASIX [Concomitant]
     Indication: DIURETIC THERAPY
     Dosage: 40 MG, QD
     Route: 048
     Dates: start: 20100101
  20. DILTIAZEM [Concomitant]
     Indication: PROPHYLAXIS
     Dosage: 240 MG, QD
     Route: 048
     Dates: start: 20100101
  21. KLOR-CON M10 [Concomitant]
     Indication: BLOOD POTASSIUM DECREASED
     Dosage: 20 MEQ, QD
     Route: 048
     Dates: start: 20100101
  22. VENTOLIN [Concomitant]
     Indication: PRODUCT USED FOR UNKNOWN INDICATION
     Dosage: AS NEEDED
     Route: 065
  23. LUBIPROSTONE [Suspect]
     Indication: CONSTIPATION
     Dosage: DOSE NOT ADMINISTERED
  24. SUPREP BOWEL PREP KIT [Concomitant]
     Indication: BOWEL PREPARATION
     Dosage: 12 OZ ONCE
     Route: 048
     Dates: start: 20120415, end: 20120415
  25. PRILOSEC [Concomitant]
     Indication: GASTROOESOPHAGEAL REFLUX DISEASE
     Dosage: 20 MG, QD
     Route: 048
     Dates: start: 19900101
  26. FLUTICASONE PROPIONATE [Concomitant]
     Indication: CHRONIC OBSTRUCTIVE PULMONARY DISEASE
     Dosage: 45 MCG, BID (1 PUFF INHALATION BID)
     Route: 055
     Dates: start: 20120421
  27. ROCEPHIN [Concomitant]
     Indication: PRODUCT USED FOR UNKNOWN INDICATION
     Dosage: UNK, UNKNOWN
     Route: 065

REACTIONS (2)
  - ASPIRATION [None]
  - LOBAR PNEUMONIA [None]
